FAERS Safety Report 5934513-8 (Version None)
Quarter: 2008Q4

REPORT INFORMATION
  Report Type: 
  Country: None (occurrence: None)
  Receive Date: 20081029
  Receipt Date: 20081016
  Transmission Date: 20090506
  Serious: Yes (Other)
  Sender: FDA-Public Use
  Company Number: US-ELI_LILLY_AND_COMPANY-US200802004484

PATIENT
  Sex: Male
  Weight: 104.31 kg

DRUGS (9)
  1. ZYPREXA [Suspect]
     Indication: DEPRESSION
     Dosage: 20 MG, UNK
     Dates: start: 20001011
  2. ZYPREXA [Suspect]
     Dosage: 20 MG, UNK
     Dates: start: 20050301
  3. ZYPREXA [Suspect]
     Dosage: 20 MG, UNK
     Dates: start: 20050720
  4. ZYPREXA [Suspect]
     Dosage: 20 MG, UNK
     Dates: start: 20051101
  5. ZYPREXA [Suspect]
     Dosage: 5 MG, UNK
     Dates: start: 20060824, end: 20060914
  6. WELLBUTRIN [Concomitant]
     Dates: start: 20050720
  7. SINEQUAN [Concomitant]
     Dates: start: 20070101
  8. PROZAC [Concomitant]
     Dates: start: 20070101
  9. PAXIL [Concomitant]
     Dates: start: 20070101

REACTIONS (7)
  - BLOOD CHOLESTEROL INCREASED [None]
  - DIABETES MELLITUS [None]
  - GLUCOSE TOLERANCE IMPAIRED [None]
  - HEPATITIS VIRAL [None]
  - HYPERTENSION [None]
  - METABOLIC DISORDER [None]
  - VISION BLURRED [None]
